FAERS Safety Report 14667595 (Version 4)
Quarter: 2019Q1

REPORT INFORMATION
  Report Type: Spontaneous
  Country: US (occurrence: US)
  Receive Date: 20180322
  Receipt Date: 20190125
  Transmission Date: 20190417
  Serious: No
  Sender: FDA-Public Use
  Company Number: US-JNJFOC-20180306291

PATIENT
  Sex: Male

DRUGS (6)
  1. KETOCONAZOLE. [Suspect]
     Active Substance: KETOCONAZOLE
     Indication: SKIN DEPIGMENTATION
     Route: 061
     Dates: start: 2017, end: 2017
  2. KETOCONAZOLE. [Suspect]
     Active Substance: KETOCONAZOLE
     Indication: SKIN DEPIGMENTATION
     Route: 061
     Dates: start: 201802
  3. KETOCONAZOLE. [Suspect]
     Active Substance: KETOCONAZOLE
     Indication: PRURITUS
     Route: 061
     Dates: start: 201802
  4. KETOCONAZOLE. [Suspect]
     Active Substance: KETOCONAZOLE
     Indication: PRURITUS
     Route: 061
     Dates: start: 2017, end: 2017
  5. KETOCONAZOLE. [Suspect]
     Active Substance: KETOCONAZOLE
     Indication: PRURITUS
     Dosage: STRENGTH: 2%
     Route: 061
     Dates: start: 20180101, end: 201801
  6. KETOCONAZOLE. [Suspect]
     Active Substance: KETOCONAZOLE
     Indication: SKIN DEPIGMENTATION
     Dosage: STRENGTH: 2%
     Route: 061
     Dates: start: 20180101, end: 201801

REACTIONS (2)
  - Drug ineffective for unapproved indication [Unknown]
  - Unintentional use for unapproved indication [Unknown]
